FAERS Safety Report 16153456 (Version 1)
Quarter: 2019Q2

REPORT INFORMATION
  Report Type: Spontaneous
  Country: FR (occurrence: FR)
  Receive Date: 20190403
  Receipt Date: 20190403
  Transmission Date: 20190711
  Serious: Yes (Hospitalization)
  Sender: FDA-Public Use
  Company Number: FR-SUN PHARMACEUTICAL INDUSTRIES LTD-2019RR-203791

PATIENT
  Age: 18 Year
  Sex: Female

DRUGS (3)
  1. MELATONINE [Suspect]
     Active Substance: MELATONIN
     Indication: TOXICITY TO VARIOUS AGENTS
     Dosage: 262.5 MILLIGRAM, IN TOTAL
     Route: 048
     Dates: start: 20180601, end: 20180601
  2. VENLAFAXINE [Suspect]
     Active Substance: VENLAFAXINE HYDROCHLORIDE
     Indication: TOXICITY TO VARIOUS AGENTS
     Dosage: 262.5 MILLIGRAM, IN TOTAL
     Route: 048
     Dates: start: 20180601, end: 20180601
  3. LORMETAZEPAM [Suspect]
     Active Substance: LORMETAZEPAM
     Indication: TOXICITY TO VARIOUS AGENTS
     Dosage: 4 MILLIGRAM, IN TOTAL
     Route: 048
     Dates: start: 20180601, end: 20180601

REACTIONS (2)
  - Toxicity to various agents [Recovered/Resolved]
  - Somnolence [Recovered/Resolved]

NARRATIVE: CASE EVENT DATE: 20180601
